FAERS Safety Report 25892931 (Version 4)
Quarter: 2025Q4

REPORT INFORMATION
  Report Type: Report from Study
  Country: US (occurrence: US)
  Receive Date: 20251007
  Receipt Date: 20251121
  Transmission Date: 20260117
  Serious: No
  Sender: SANDOZ
  Company Number: US-SANDOZ-SDZ2025US071807

PATIENT
  Sex: Male

DRUGS (2)
  1. OMNITROPE [Suspect]
     Active Substance: SOMATROPIN
     Indication: Short stature
     Dosage: 2 MG, QD, STRENGTH 10 MG / 1.5 ML
     Route: 058
     Dates: start: 20250927
  2. OMNITROPE [Suspect]
     Active Substance: SOMATROPIN
     Indication: Short stature
     Dosage: 2 MG, QD, STRENGTH 10 MG / 1.5 ML
     Route: 058
     Dates: start: 20250927

REACTIONS (6)
  - Injection site erythema [Recovered/Resolved]
  - Injection site bruising [Unknown]
  - Injection site discomfort [Unknown]
  - Adverse drug reaction [Unknown]
  - Injection site pain [Recovered/Resolved]
  - Therapy cessation [Unknown]

NARRATIVE: CASE EVENT DATE: 20250101
